FAERS Safety Report 20965097 (Version 11)
Quarter: 2023Q2

REPORT INFORMATION
  Report Type: Report from Study
  Country: US (occurrence: US)
  Receive Date: 20220616
  Receipt Date: 20230620
  Transmission Date: 20230722
  Serious: Yes (Hospitalization, Other)
  Sender: FDA-Public Use
  Company Number: US-AKCEA THERAPEUTICS, INC.-2021IS001983

PATIENT

DRUGS (2)
  1. TEGSEDI [Suspect]
     Active Substance: INOTERSEN SODIUM
     Indication: Hereditary neuropathic amyloidosis
     Dosage: 284 MG, QW
     Route: 058
     Dates: start: 20190116
  2. TEGSEDI [Suspect]
     Active Substance: INOTERSEN SODIUM
     Dosage: 284 MG, QW
     Route: 058
     Dates: start: 20200116

REACTIONS (24)
  - Dehydration [Unknown]
  - Glomerular filtration rate decreased [Not Recovered/Not Resolved]
  - Blood creatinine increased [Not Recovered/Not Resolved]
  - Glucose urine present [Not Recovered/Not Resolved]
  - Urine abnormality [Unknown]
  - Urinary sediment present [Not Recovered/Not Resolved]
  - Crystal urine present [Unknown]
  - White blood cells urine positive [Not Recovered/Not Resolved]
  - Urinary occult blood positive [Unknown]
  - Urine leukocyte esterase positive [Not Recovered/Not Resolved]
  - Protein urine present [Not Recovered/Not Resolved]
  - Bacterial test positive [Not Recovered/Not Resolved]
  - Urine protein/creatinine ratio increased [Not Recovered/Not Resolved]
  - Platelet count decreased [Not Recovered/Not Resolved]
  - Peripheral swelling [Unknown]
  - Urinary casts present [Unknown]
  - Thrombocytopenia [Unknown]
  - Injection site reaction [Not Recovered/Not Resolved]
  - Injection site erythema [Not Recovered/Not Resolved]
  - Fatigue [Not Recovered/Not Resolved]
  - Dizziness [Not Recovered/Not Resolved]
  - Dyspnoea [Unknown]
  - Aspartate aminotransferase abnormal [Unknown]
  - Swelling [Unknown]

NARRATIVE: CASE EVENT DATE: 20201005
